FAERS Safety Report 8695907 (Version 2)
Quarter: 2013Q4

REPORT INFORMATION
  Report Type: Spontaneous
  Country: US (occurrence: US)
  Receive Date: 20120801
  Receipt Date: 20131107
  Transmission Date: 20140711
  Serious: Yes (Hospitalization)
  Sender: FDA-Public Use
  Company Number: US-MSD-1207USA009883

PATIENT
  Age: 80 Year
  Sex: Male

DRUGS (2)
  1. ZOCOR [Suspect]
     Dosage: 20 MG, UNK
     Route: 048
  2. DILTIAZEM HYDROCHLORIDE [Suspect]
     Dosage: 300 MG, UNK

REACTIONS (3)
  - Chylothorax [Unknown]
  - Inflammation [Unknown]
  - Anaemia [Unknown]
